FAERS Safety Report 16163512 (Version 1)
Quarter: 2019Q2

REPORT INFORMATION
  Report Type: Spontaneous
  Country: US (occurrence: US)
  Receive Date: 20190405
  Receipt Date: 20190405
  Transmission Date: 20190711
  Serious: Yes (Life-Threatening, Hospitalization, Other)
  Sender: FDA-Public Use
  Company Number: US-AMGEN-USASP2019052104

PATIENT
  Sex: Female

DRUGS (1)
  1. PROLIA [Suspect]
     Active Substance: DENOSUMAB
     Indication: OSTEOPOROSIS POSTMENOPAUSAL
     Dosage: UNK, Q6MO
     Route: 065
     Dates: start: 201802

REACTIONS (5)
  - Pneumothorax [Unknown]
  - Rib fracture [Unknown]
  - Spinal fracture [Unknown]
  - Fall [Unknown]
  - Varicose vein [Unknown]

NARRATIVE: CASE EVENT DATE: 201802
